FAERS Safety Report 16422285 (Version 1)
Quarter: 2019Q2

REPORT INFORMATION
  Report Type: Spontaneous
  Country: ES (occurrence: ES)
  Receive Date: 20190612
  Receipt Date: 20190612
  Transmission Date: 20190711
  Serious: Yes (Disabling, Other)
  Sender: FDA-Public Use
  Company Number: ES-TEVA-2019-ES-1060908

PATIENT
  Age: 7 Year
  Sex: Female
  Weight: 25 kg

DRUGS (2)
  1. TOLTERODINA (2796A) [Suspect]
     Active Substance: TOLTERODINE
     Indication: NEUROGENIC BLADDER
     Dosage: 4 MILLIGRAM DAILY;
     Route: 048
     Dates: start: 20180914, end: 20190513
  2. MINURIN [Concomitant]
     Active Substance: DESMOPRESSIN ACETATE
     Dosage: 240 MILLIGRAM DAILY;
     Route: 048
     Dates: start: 20190214, end: 20190513

REACTIONS (2)
  - Visual acuity reduced [Not Recovered/Not Resolved]
  - Cataract subcapsular [Not Recovered/Not Resolved]

NARRATIVE: CASE EVENT DATE: 20181201
